FAERS Safety Report 8975768 (Version 1)
Quarter: 2012Q4

REPORT INFORMATION
  Report Type: 
  Country: FR (occurrence: FR)
  Receive Date: 20121219
  Receipt Date: 20121219
  Transmission Date: 20130627
  Serious: Yes (Other)
  Sender: FDA-Public Use
  Company Number: FR-MERCK-1212FRA001520

PATIENT
  Age: 33 Year
  Sex: Female

DRUGS (2)
  1. CANCIDAS [Suspect]
     Indication: SYSTEMIC CANDIDA
     Dosage: 70 mg, qd
     Route: 042
     Dates: start: 201202, end: 201203
  2. ARACYTINE [Concomitant]

REACTIONS (2)
  - Febrile bone marrow aplasia [Recovering/Resolving]
  - Liver abscess [Recovering/Resolving]
